FAERS Safety Report 21260771 (Version 3)
Quarter: 2023Q1

REPORT INFORMATION
  Report Type: Spontaneous
  Country: US (occurrence: US)
  Receive Date: 20220826
  Receipt Date: 20230225
  Transmission Date: 20230418
  Serious: No
  Sender: FDA-Public Use
  Company Number: US-BANNER LIFE SCIENCES, LLC-2022BAN000149

PATIENT

DRUGS (1)
  1. BAFIERTAM [Suspect]
     Active Substance: MONOMETHYL FUMARATE
     Indication: Multiple sclerosis
     Dosage: 95 MILLIGRAM, 1 CAPSULE BY MOUTH TWICE DAILY FOR 7 DAYS, THEN 2 CAPSULES TWICE DAILY THEREAFTER
     Route: 048
     Dates: start: 202207, end: 202209

REACTIONS (9)
  - Illness [Unknown]
  - Somnolence [Unknown]
  - Hyperhidrosis [Unknown]
  - Formication [Unknown]
  - Pain [Unknown]
  - Nausea [Unknown]
  - Erythema [Unknown]
  - Flushing [Unknown]
  - Burning sensation [Unknown]

NARRATIVE: CASE EVENT DATE: 20220101
